FAERS Safety Report 18151377 (Version 4)
Quarter: 2020Q3

REPORT INFORMATION
  Report Type: Report from Study
  Country: US (occurrence: US)
  Receive Date: 20200814
  Receipt Date: 20200923
  Transmission Date: 20201103
  Serious: Yes (Hospitalization, Other)
  Sender: FDA-Public Use
  Company Number: US-009507513-1712USA008526

PATIENT
  Age: 59 Year
  Sex: Male
  Weight: 87.08 kg

DRUGS (24)
  1. NOVOLOG [Concomitant]
     Active Substance: INSULIN ASPART
     Dosage: 1?2 UNITS INJECTED 2?3 TIMES DAILY ^DEPENDING ON BLOOD SUGAR^
  2. PREDNISONE. [Concomitant]
     Active Substance: PREDNISONE
  3. IBUPROFEN. [Concomitant]
     Active Substance: IBUPROFEN
     Indication: BACK PAIN
     Dosage: UNSPECIFIED DOSE AS NEEDED
  4. PEMBROLIZUMAB. [Suspect]
     Active Substance: PEMBROLIZUMAB
     Dosage: 200 MILLIGRAM, Q3W; ROUTE OF ADMINISTRATION: PORT
     Dates: start: 20200827
  5. PROVENTIL [Suspect]
     Active Substance: ALBUTEROL
     Indication: COUGH
  6. COLESEVELAM HYDROCHLORIDE. [Concomitant]
     Active Substance: COLESEVELAM HYDROCHLORIDE
  7. PEMBROLIZUMAB. [Suspect]
     Active Substance: PEMBROLIZUMAB
     Indication: TUMOUR NECROSIS
     Dosage: 200 MG, Q3W
     Dates: start: 20180326
  8. IBUPROFEN. [Concomitant]
     Active Substance: IBUPROFEN
     Indication: ABDOMINAL PAIN
  9. PEMBROLIZUMAB. [Suspect]
     Active Substance: PEMBROLIZUMAB
     Dosage: UNK
     Dates: start: 20180507
  10. PEMBROLIZUMAB. [Suspect]
     Active Substance: PEMBROLIZUMAB
     Dosage: 200 MG, Q3W
     Route: 042
     Dates: start: 20180813
  11. PEMBROLIZUMAB. [Suspect]
     Active Substance: PEMBROLIZUMAB
     Dosage: 50 MILLIGRAM (EVERY 2 WEEKS)
     Dates: start: 201903, end: 201906
  12. INSULIN [Concomitant]
     Active Substance: INSULIN NOS
     Indication: TYPE 2 DIABETES MELLITUS
     Dosage: UNK
  13. GABAPENTIN. [Concomitant]
     Active Substance: GABAPENTIN
     Indication: SCIATICA
     Dosage: 300MG ONCE DAILY AS NEEDED
     Route: 048
  14. PEMBROLIZUMAB. [Suspect]
     Active Substance: PEMBROLIZUMAB
     Indication: PANCREATIC CARCINOMA
     Dosage: 200 MG, Q3W
     Route: 041
     Dates: start: 201709, end: 201801
  15. PEMBROLIZUMAB. [Suspect]
     Active Substance: PEMBROLIZUMAB
     Indication: MICROSATELLITE INSTABILITY CANCER
     Dosage: 100 MG, Q3W
     Dates: start: 20180122
  16. PROVENTIL [Suspect]
     Active Substance: ALBUTEROL
     Indication: DYSPNOEA
     Dosage: UNK
     Dates: start: 2017
  17. FLUOROURACIL. [Suspect]
     Active Substance: FLUOROURACIL
     Indication: MICROSATELLITE INSTABILITY CANCER
     Dosage: UNK
     Route: 065
     Dates: start: 2017, end: 201707
  18. ADVIL [Concomitant]
     Active Substance: IBUPROFEN
     Indication: BACK PAIN
     Dosage: UNK UNK, PRN (1?2 TIMES DAILY AS NEEDED)
  19. OXALIPLATIN. [Suspect]
     Active Substance: OXALIPLATIN
     Indication: MICROSATELLITE INSTABILITY CANCER
     Dosage: UNK
     Route: 065
     Dates: start: 2017, end: 201707
  20. LANTUS [Concomitant]
     Active Substance: INSULIN GLARGINE
     Indication: DIABETES MELLITUS
     Dosage: 18 DOSAGE FORM, HS (ONCE NIGHTLY AT 11 PM)
  21. HYDROCODONE [Concomitant]
     Active Substance: HYDROCODONE
     Indication: PAIN
     Dosage: 5MG BY MOUTH 1?2 TIMES PER DAY AS NEEDED
     Route: 048
  22. PEMBROLIZUMAB. [Suspect]
     Active Substance: PEMBROLIZUMAB
     Dosage: 100 MG (EVERY  2 WEEKS)
     Dates: start: 201811
  23. IRINOTECAN HYDROCHLORIDE. [Suspect]
     Active Substance: IRINOTECAN HYDROCHLORIDE
     Indication: MICROSATELLITE INSTABILITY CANCER
     Dosage: UNK
     Route: 065
     Dates: start: 2017, end: 201707
  24. REPAGLINIDE. [Concomitant]
     Active Substance: REPAGLINIDE

REACTIONS (21)
  - Tumour necrosis [Not Recovered/Not Resolved]
  - Orthopnoea [Not Recovered/Not Resolved]
  - Circumstance or information capable of leading to medication error [Unknown]
  - Product use in unapproved indication [Unknown]
  - Malignant neoplasm progression [Unknown]
  - Weight fluctuation [Unknown]
  - Immune system disorder [Unknown]
  - Neuropathy peripheral [Unknown]
  - Adverse event [Unknown]
  - Weight decreased [Recovering/Resolving]
  - Dyspnoea [Not Recovered/Not Resolved]
  - Oxygen consumption decreased [Recovering/Resolving]
  - Weight increased [Unknown]
  - Constipation [Unknown]
  - Organising pneumonia [Unknown]
  - Pneumonitis [Recovered/Resolved]
  - Hereditary non-polyposis colorectal cancer syndrome [Unknown]
  - Cough [Not Recovered/Not Resolved]
  - Pneumonitis [Recovered/Resolved]
  - Lymph node pain [Unknown]
  - Lymphocyte count abnormal [Unknown]

NARRATIVE: CASE EVENT DATE: 2017
